FAERS Safety Report 6540459-7 (Version None)
Quarter: 2010Q1

REPORT INFORMATION
  Report Type: 
  Country: None (occurrence: None)
  Receive Date: 20100113
  Receipt Date: 20100106
  Transmission Date: 20100710
  Serious: Yes (Hospitalization, Other)
  Sender: FDA-Public Use
  Company Number: 2009029158

PATIENT
  Age: 37 Year
  Sex: Female

DRUGS (5)
  1. PROVIGIL [Suspect]
     Indication: CATAPLEXY
     Dosage: 800 MG (800 MG, AM), ORAL; 600 MG (600 MG,PM), ORAL
     Route: 048
     Dates: start: 20010101
  2. PROVIGIL [Suspect]
     Indication: NARCOLEPSY
     Dosage: 800 MG (800 MG, AM), ORAL; 600 MG (600 MG,PM), ORAL
     Route: 048
     Dates: start: 20010101
  3. PROVIGIL [Suspect]
     Indication: CATAPLEXY
     Dosage: 800 MG (800 MG, AM), ORAL; 600 MG (600 MG,PM), ORAL
     Route: 048
     Dates: start: 20010101
  4. PROVIGIL [Suspect]
     Indication: NARCOLEPSY
     Dosage: 800 MG (800 MG, AM), ORAL; 600 MG (600 MG,PM), ORAL
     Route: 048
     Dates: start: 20010101
  5. CLOMIPRAMINE HCL [Concomitant]

REACTIONS (3)
  - ANGIOEDEMA [None]
  - DRUG PRESCRIBING ERROR [None]
  - OVERDOSE [None]
